FAERS Safety Report 20394930 (Version 1)
Quarter: 2022Q1

REPORT INFORMATION
  Report Type: Spontaneous
  Country: PL (occurrence: PL)
  Receive Date: 20220130
  Receipt Date: 20220130
  Transmission Date: 20220423
  Serious: Yes (Hospitalization, Other)
  Sender: FDA-Public Use
  Company Number: PL-JAZZ-2020-PL-011706

PATIENT
  Age: 15 Year
  Sex: Male

DRUGS (10)
  1. ASPARAGINASE [Suspect]
     Active Substance: ASPARAGINASE
     Dosage: 8 DOSAGE FORM
     Route: 065
  2. VINCRISTINE [Suspect]
     Active Substance: VINCRISTINE
     Indication: B precursor type acute leukaemia
     Dosage: INDUCTION THERAPY ONCE PER WEEK WITH FOUR TOTAL DOSES
  3. PREDNISOLONE [Suspect]
     Active Substance: PREDNISOLONE
     Indication: B precursor type acute leukaemia
     Dosage: INDUCTION THERAPY ONCE PER WEEK WITH FOUR TOTAL DOSES
  4. MERCAPTOPURINE [Suspect]
     Active Substance: MERCAPTOPURINE
     Indication: B precursor type acute leukaemia
     Dosage: UNK
     Route: 048
     Dates: start: 2017
  5. CYCLOPHOSPHAMIDE [Suspect]
     Active Substance: CYCLOPHOSPHAMIDE
     Indication: B precursor type acute leukaemia
     Dosage: UNK
     Dates: start: 2017
  6. CYTARABINE [Suspect]
     Active Substance: CYTARABINE
     Indication: B precursor type acute leukaemia
     Dosage: 8 DF, ESCHERICHIA COLI DERIVED L-ASPARAGINASE
     Dates: start: 2017
  7. PREDNISONE [Suspect]
     Active Substance: PREDNISONE
     Indication: B precursor type acute leukaemia
     Dosage: CYTOREDUCTIVE PREDNISONE PROPHASE
     Dates: start: 201712
  8. METHOTREXATE [Suspect]
     Active Substance: METHOTREXATE
     Indication: B precursor type acute leukaemia
     Dosage: UNK
     Route: 037
     Dates: start: 201612
  9. METHOTREXATE [Suspect]
     Active Substance: METHOTREXATE
     Dosage: UNK
     Route: 037
     Dates: start: 2017
  10. DAUNORUBICIN [Suspect]
     Active Substance: DAUNORUBICIN
     Indication: B precursor type acute leukaemia
     Dosage: INDUCTION THERAPY ONCE PER WEEK WITH FOUR TOTAL DOSES

REACTIONS (7)
  - Pancytopenia [Recovered/Resolved]
  - Oedema peripheral [Recovered/Resolved]
  - Hydrothorax [Recovered/Resolved]
  - Xanthogranuloma [Recovered/Resolved]
  - Tuberculosis [Recovered/Resolved]
  - Haemophagocytic lymphohistiocytosis [Recovered/Resolved]
  - Protein-losing gastroenteropathy [Recovered/Resolved]

NARRATIVE: CASE EVENT DATE: 20170101
